FAERS Safety Report 8390399-6 (Version None)
Quarter: 2012Q2

REPORT INFORMATION
  Report Type: 
  Country: None (occurrence: None)
  Receive Date: 20120529
  Receipt Date: 20120516
  Transmission Date: 20120825
  Serious: Yes (Other)
  Sender: FDA-Public Use
  Company Number: CA-JNJFOC-20120514959

PATIENT
  Sex: Female
  Weight: 63 kg

DRUGS (2)
  1. HYDROCORTISONE [Concomitant]
     Indication: PREMEDICATION
     Route: 042
  2. REMICADE [Suspect]
     Indication: CROHN'S DISEASE
     Dosage: X 52 WEEKS
     Route: 042
     Dates: start: 20070509

REACTIONS (2)
  - FALL [None]
  - PELVIC FRACTURE [None]
